FAERS Safety Report 7525210-6 (Version None)
Quarter: 2011Q2

REPORT INFORMATION
  Report Type: 
  Country: None (occurrence: None)
  Receive Date: 20110606
  Receipt Date: 20110526
  Transmission Date: 20111010
  Serious: Yes (Hospitalization, Other)
  Sender: FDA-Public Use
  Company Number: CA-SANOFI-AVENTIS-2011SA033390

PATIENT
  Age: 57 Year
  Sex: Male
  Weight: 107 kg

DRUGS (3)
  1. METOPROLOL TARTRATE [Concomitant]
     Route: 048
     Dates: start: 20090901, end: 20100426
  2. PERINDOPRIL ERBUMINE [Concomitant]
     Route: 048
     Dates: start: 20091205
  3. MULTAQ [Suspect]
     Route: 048
     Dates: start: 20100426, end: 20100429

REACTIONS (9)
  - LETHARGY [None]
  - HOT FLUSH [None]
  - BRADYCARDIA [None]
  - ATRIAL FIBRILLATION [None]
  - ELECTROCARDIOGRAM QT PROLONGED [None]
  - ATRIOVENTRICULAR BLOCK FIRST DEGREE [None]
  - DYSPNOEA [None]
  - DRUG INTOLERANCE [None]
  - SUPRAVENTRICULAR EXTRASYSTOLES [None]
